FAERS Safety Report 8396332-5 (Version None)
Quarter: 2012Q2

REPORT INFORMATION
  Report Type: 
  Country: None (occurrence: None)
  Receive Date: 20120530
  Receipt Date: 20120521
  Transmission Date: 20120825
  Serious: Yes (Hospitalization, Other)
  Sender: FDA-Public Use
  Company Number: US-ASTRAZENECA-2011SE76991

PATIENT
  Age: 63 Year
  Sex: Female

DRUGS (2)
  1. BRILINTA [Suspect]
     Route: 048
  2. NEXIUM [Suspect]
     Indication: DIARRHOEA
     Route: 048

REACTIONS (8)
  - OFF LABEL USE [None]
  - CORONARY ARTERY OCCLUSION [None]
  - CHRONIC OBSTRUCTIVE PULMONARY DISEASE [None]
  - ECZEMA [None]
  - BLOOD BLISTER [None]
  - BURNING SENSATION [None]
  - DYSPNOEA [None]
  - EAR HAEMORRHAGE [None]
